FAERS Safety Report 5061097-1 (Version None)
Quarter: 2006Q3

REPORT INFORMATION
  Report Type: 
  Country: None (occurrence: None)
  Receive Date: 20060720
  Receipt Date: 20060701
  Transmission Date: 20061208
  Serious: Yes (Hospitalization)
  Sender: FDA-Public Use
  Company Number: 163-21880-06070152

PATIENT
  Age: 71 Year
  Sex: Male
  Weight: 93.3 kg

DRUGS (4)
  1. REVLIMID [Suspect]
     Indication: MYELOFIBROSIS
     Dosage: SEE IMAGE
     Route: 048
     Dates: start: 20060501, end: 20060514
  2. REVLIMID [Suspect]
     Indication: MYELOFIBROSIS
     Dosage: SEE IMAGE
     Route: 048
     Dates: start: 20060527
  3. PREDNISONE TAB [Suspect]
     Indication: MYELOFIBROSIS
     Dosage: 30 MG, 1 IN 1 D, ORAL
     Route: 048
     Dates: start: 20060501, end: 20060514
  4. PREDNISONE TAB [Suspect]
     Indication: MYELOFIBROSIS
     Dosage: 30 MG, 1 IN 1 D, ORAL
     Route: 048
     Dates: start: 20060517

REACTIONS (1)
  - PERICARDITIS [None]
